FAERS Safety Report 22064335 (Version 1)
Quarter: 2023Q1

REPORT INFORMATION
  Report Type: Spontaneous
  Country: US (occurrence: None)
  Receive Date: 20230304
  Receipt Date: 20230304
  Transmission Date: 20230418
  Serious: No
  Sender: FDA-Public Use
  Company Number: None

PATIENT
  Age: 34 Year
  Sex: Female

DRUGS (1)
  1. BUPROPION HYDROCHLORIDE [Suspect]
     Active Substance: BUPROPION HYDROCHLORIDE
     Indication: Anxiety
     Dosage: 1 CAPSULE DAILY ORAL?
     Route: 048
     Dates: start: 20230218, end: 20230303

REACTIONS (5)
  - Panic attack [None]
  - Anxiety [None]
  - Nightmare [None]
  - Mood altered [None]
  - Product substitution issue [None]

NARRATIVE: CASE EVENT DATE: 20230303
